FAERS Safety Report 6170530-3 (Version None)
Quarter: 2009Q2

REPORT INFORMATION
  Report Type: 
  Country: None (occurrence: None)
  Receive Date: 20090428
  Receipt Date: 20090422
  Transmission Date: 20091009
  Serious: Yes (Death, Life-Threatening, Hospitalization)
  Sender: FDA-Public Use
  Company Number: NL-TEVA-192750ISR

PATIENT
  Sex: Male
  Weight: 80 kg

DRUGS (3)
  1. BACTRIM [Suspect]
     Dates: start: 20080817, end: 20090226
  2. FLUDARABINE PHOSPHATE [Interacting]
     Indication: CHRONIC LYMPHOCYTIC LEUKAEMIA
     Dates: start: 20080917
  3. CYCLOPHOSPHAMIDE [Interacting]
     Dates: start: 20080917, end: 20081227

REACTIONS (6)
  - DEATH [None]
  - DRUG RESISTANCE [None]
  - LUNG INFECTION PSEUDOMONAL [None]
  - MUCOSAL INFLAMMATION [None]
  - NEUTROPENIA [None]
  - SEPSIS [None]
